FAERS Safety Report 9187704 (Version 2)
Quarter: 2013Q1

REPORT INFORMATION
  Report Type: Spontaneous
  Country: US (occurrence: US)
  Receive Date: 20130325
  Receipt Date: 20130325
  Transmission Date: 20140127
  Serious: No
  Sender: FDA-Public Use
  Company Number: US-MYLANLABS-2012S1003639

PATIENT
  Sex: Male

DRUGS (4)
  1. FENTANYL TRANSDERMAL SYSTEM [Suspect]
     Indication: BACK PAIN
     Dosage: CHANGED Q72H
     Route: 062
     Dates: start: 2010, end: 201204
  2. FENTANYL TRANSDERMAL SYSTEM [Suspect]
     Indication: BACK PAIN
     Dosage: CHANGED Q48H
     Route: 062
     Dates: start: 201204
  3. LORTAB [Concomitant]
     Indication: BREAKTHROUGH PAIN
  4. PROAIR /00139502/ [Concomitant]
     Indication: ASTHMA

REACTIONS (3)
  - Drug effect decreased [Recovered/Resolved]
  - Back pain [Recovered/Resolved]
  - Sneezing [Recovered/Resolved]
